FAERS Safety Report 21381601 (Version 4)
Quarter: 2022Q4

REPORT INFORMATION
  Report Type: Spontaneous
  Country: FR (occurrence: FR)
  Receive Date: 20220927
  Receipt Date: 20221208
  Transmission Date: 20230112
  Serious: Yes (Hospitalization, Other)
  Sender: FDA-Public Use
  Company Number: FR-GRUNENTHAL-2022-107696

PATIENT
  Sex: Female

DRUGS (2)
  1. QUTENZA [Suspect]
     Active Substance: CAPSAICIN
     Indication: Medical device pain
     Dosage: 1 DOSAGE FORM
     Route: 065
     Dates: start: 20220524, end: 20220524
  2. QUTENZA [Suspect]
     Active Substance: CAPSAICIN
     Dosage: UNK
     Route: 065
     Dates: start: 20220802, end: 20220802

REACTIONS (1)
  - Pulmonary embolism [Recovered/Resolved]
